FAERS Safety Report 6381808-2 (Version None)
Quarter: 2009Q3

REPORT INFORMATION
  Report Type: 
  Country: None (occurrence: None)
  Receive Date: 20090930
  Receipt Date: 20090922
  Transmission Date: 20100115
  Serious: Yes (Hospitalization, Other)
  Sender: FDA-Public Use
  Company Number: US-ELI_LILLY_AND_COMPANY-US200909005424

PATIENT
  Sex: Female

DRUGS (3)
  1. HUMALOG MIX 75/25 [Suspect]
     Dates: start: 20090101
  2. HUMALOG MIX 75/25 [Suspect]
     Dates: start: 20090101
  3. HUMULIN N [Suspect]

REACTIONS (6)
  - BLOOD GLUCOSE DECREASED [None]
  - BLOOD GLUCOSE INCREASED [None]
  - PNEUMONIA [None]
  - SPINAL LAMINECTOMY [None]
  - SPINAL OSTEOARTHRITIS [None]
  - UNEQUAL LIMB LENGTH [None]
